FAERS Safety Report 4704098-2 (Version None)
Quarter: 2005Q2

REPORT INFORMATION
  Report Type: 
  Country: None (occurrence: None)
  Receive Date: 20050629
  Receipt Date: 20050531
  Transmission Date: 20051028
  Serious: Yes (Life-Threatening)
  Sender: FDA-Public Use
  Company Number: 11327

PATIENT
  Age: 17 Year
  Sex: Female

DRUGS (3)
  1. METHOTREXATE [Suspect]
     Indication: ACUTE LYMPHOCYTIC LEUKAEMIA RECURRENT
     Dosage: 12 MG IT
     Route: 038
     Dates: start: 20020705, end: 20020715
  2. CYTARABINE [Suspect]
     Indication: ACUTE LYMPHOCYTIC LEUKAEMIA
     Dosage: 30 MG IT
     Route: 038
     Dates: start: 20020705, end: 20020715
  3. HYDROCORTISONE SODIUM SUCCINATE [Suspect]
     Indication: ACUTE LYMPHOCYTIC LEUKAEMIA
     Dosage: 30 MG IT
     Route: 038
     Dates: start: 20020705, end: 20020715

REACTIONS (9)
  - ACUTE RESPIRATORY DISTRESS SYNDROME [None]
  - BONE MARROW DEPRESSION [None]
  - EMPHYSEMA [None]
  - ESCHERICHIA SEPSIS [None]
  - PNEUMONIA [None]
  - PULMONARY MYCOSIS [None]
  - RESPIRATORY FAILURE [None]
  - SYSTEMIC CANDIDA [None]
  - THERAPY NON-RESPONDER [None]
